FAERS Safety Report 8219073-3 (Version None)
Quarter: 2012Q1

REPORT INFORMATION
  Report Type: 
  Country: None (occurrence: None)
  Receive Date: 20120319
  Receipt Date: 20120312
  Transmission Date: 20120608
  Serious: Yes (Hospitalization)
  Sender: FDA-Public Use
  Company Number: ES-SANOFI-AVENTIS-2012SA016666

PATIENT
  Sex: Male

DRUGS (4)
  1. OMEPRAZOLE [Concomitant]
  2. ENALAPRIL [Concomitant]
  3. CISPLATIN [Suspect]
     Route: 042
     Dates: start: 20110317, end: 20110317
  4. DOCETAXEL [Suspect]
     Route: 042
     Dates: start: 20110317, end: 20110317

REACTIONS (6)
  - PYREXIA [None]
  - ASTHENIA [None]
  - DIARRHOEA [None]
  - COUGH [None]
  - HAEMOPTYSIS [None]
  - PNEUMONITIS [None]
